FAERS Safety Report 5720247-1 (Version None)
Quarter: 2008Q2

REPORT INFORMATION
  Report Type: 
  Country: None (occurrence: None)
  Receive Date: 20080423
  Receipt Date: 20070803
  Transmission Date: 20081010
  Serious: Yes (Hospitalization)
  Sender: FDA-Public Use
  Company Number: 243310

PATIENT
  Age: 75 Year
  Sex: Female
  Weight: 59.4 kg

DRUGS (2)
  1. AVASTIN [Suspect]
     Indication: RECTAL CANCER METASTATIC
     Dosage: 5 MG/KG,Q2W, INTRAVENOUS
     Route: 042
     Dates: start: 20061027
  2. COUMADIN [Concomitant]

REACTIONS (2)
  - DIARRHOEA [None]
  - HAEMATOCHEZIA [None]
